FAERS Safety Report 11262904 (Version 2)
Quarter: 2015Q3

REPORT INFORMATION
  Report Type: Spontaneous
  Country: None (occurrence: GB)
  Receive Date: 20150710
  Receipt Date: 20150728
  Transmission Date: 20151125
  Serious: Yes (Other)
  Sender: FDA-Public Use
  Company Number: GB-MEDAC PHARMA, INC.-1040471

PATIENT
  Sex: Male

DRUGS (1)
  1. METOJECT PEN [Suspect]
     Active Substance: METHOTREXATE

REACTIONS (1)
  - Neoplasm malignant [Unknown]
